FAERS Safety Report 10458395 (Version 1)
Quarter: 2014Q3

REPORT INFORMATION
  Report Type: Spontaneous
  Country: US (occurrence: None)
  Receive Date: 20140916
  Receipt Date: 20140916
  Transmission Date: 20150326
  Serious: Yes (Life-Threatening)
  Sender: FDA-Public Use
  Company Number: None

PATIENT
  Age: 67 Year
  Sex: Female
  Weight: 61.69 kg

DRUGS (1)
  1. ZZZQUIL NIGHTTIME SLEEP-AID [Suspect]
     Active Substance: DIPHENHYDRAMINE HYDROCHLORIDE
     Indication: SLEEP DISORDER
     Route: 048
     Dates: start: 20140904, end: 20140905

REACTIONS (6)
  - Poisoning [None]
  - Malaise [None]
  - Dyspnoea [None]
  - Pyrexia [None]
  - Palpitations [None]
  - Skin discolouration [None]

NARRATIVE: CASE EVENT DATE: 20140904
